FAERS Safety Report 8938974 (Version 2)
Quarter: 2012Q4

REPORT INFORMATION
  Report Type: 
  Country: US (occurrence: US)
  Receive Date: 20121121
  Receipt Date: 20121212
  Transmission Date: 20130627
  Serious: Yes (Death, Other)
  Sender: FDA-Public Use
  Company Number: US-ASTELLAS-1112550

PATIENT
  Sex: Female

DRUGS (2)
  1. TARCEVA [Suspect]
     Indication: BONE NEOPLASM MALIGNANT
     Route: 048
     Dates: start: 20091208, end: 20100224
  2. TARCEVA [Suspect]
     Indication: LUNG NEOPLASM MALIGNANT

REACTIONS (5)
  - Death [Fatal]
  - Decreased appetite [Unknown]
  - Fatigue [Unknown]
  - Disease progression [Unknown]
  - Pleural effusion [Unknown]
